FAERS Safety Report 19944438 (Version 1)
Quarter: 2021Q4

REPORT INFORMATION
  Report Type: 
  Country: US (occurrence: US)
  Receive Date: 20211011
  Receipt Date: 20211011
  Transmission Date: 20220303
  Serious: No
  Sender: FDA-Public Use
  Company Number: US-C B FLEET CO INC-202104-US-001531

PATIENT
  Sex: Female

DRUGS (1)
  1. MONISTAT 3 COMBINATION PACK 3-DAY IN PRE-FILLED APPLICATORS [Suspect]
     Active Substance: MICONAZOLE NITRATE
     Indication: Fungal infection
     Dosage: USED 3 DAYS

REACTIONS (5)
  - Vulvovaginal swelling [Recovered/Resolved]
  - Vulvovaginal pain [Recovered/Resolved]
  - Vulvovaginal burning sensation [Recovered/Resolved]
  - Vulvovaginal pruritus [Recovered/Resolved]
  - Abdominal pain [Recovered/Resolved]
